FAERS Safety Report 8504688-5 (Version None)
Quarter: 2012Q3

REPORT INFORMATION
  Report Type: 
  Country: None (occurrence: None)
  Receive Date: 20120711
  Receipt Date: 20120705
  Transmission Date: 20120928
  Serious: Yes (Other)
  Sender: FDA-Public Use
  Company Number: US-TEVA-344874USA

PATIENT
  Sex: Female

DRUGS (1)
  1. COPAXONE [Suspect]
     Indication: MULTIPLE SCLEROSIS
     Dates: start: 20060401

REACTIONS (5)
  - HYPERSENSITIVITY [None]
  - THROAT IRRITATION [None]
  - BRONCHOSPASM [None]
  - RESPIRATORY ARREST [None]
  - ANXIETY [None]
